FAERS Safety Report 12662362 (Version 2)
Quarter: 2016Q4

REPORT INFORMATION
  Report Type: Report from Study
  Country: PL (occurrence: PL)
  Receive Date: 20160817
  Receipt Date: 20161018
  Transmission Date: 20170207
  Serious: Yes (Hospitalization)
  Sender: FDA-Public Use
  Company Number: PL-ASTRAZENECA-2016SE86112

PATIENT
  Age: 19463 Day
  Sex: Male

DRUGS (10)
  1. SAXAGLIPTIN [Suspect]
     Active Substance: SAXAGLIPTIN
     Indication: TYPE 2 DIABETES MELLITUS
     Route: 048
     Dates: start: 20151103
  2. ZINAT [Concomitant]
     Active Substance: CEFUROXIME AXETIL
  3. JANUWIA [Concomitant]
  4. VARHIST [Concomitant]
  5. BISOCARD [Concomitant]
     Active Substance: BISOPROLOL
  6. ACARD [Concomitant]
     Active Substance: ASPIRIN
  7. TANAKAN [Concomitant]
     Active Substance: GINKGO
  8. FORMETIC [Concomitant]
  9. DAPAGLIFLOZIN [Suspect]
     Active Substance: DAPAGLIFLOZIN
     Indication: TYPE 2 DIABETES MELLITUS
     Route: 048
     Dates: start: 20151103
  10. VALSARTAN HCT [Concomitant]
     Active Substance: HYDROCHLOROTHIAZIDE\VALSARTAN

REACTIONS (1)
  - Vertebrobasilar insufficiency [Recovered/Resolved]

NARRATIVE: CASE EVENT DATE: 20160617
